FAERS Safety Report 13058629 (Version 1)
Quarter: 2016Q4

REPORT INFORMATION
  Report Type: Spontaneous
  Country: US (occurrence: US)
  Receive Date: 20161223
  Receipt Date: 20161223
  Transmission Date: 20170207
  Serious: Yes (Other)
  Sender: FDA-Public Use
  Company Number: None

PATIENT
  Age: 28 Year
  Sex: Female
  Weight: 110.25 kg

DRUGS (11)
  1. PREDNISONE. [Concomitant]
     Active Substance: PREDNISONE
  2. ZYRTEC [Concomitant]
     Active Substance: CETIRIZINE HYDROCHLORIDE
  3. PROTONIX [Concomitant]
     Active Substance: PANTOPRAZOLE SODIUM
  4. TOPAMAX [Concomitant]
     Active Substance: TOPIRAMATE
  5. ZANAFLEX [Concomitant]
     Active Substance: TIZANIDINE HYDROCHLORIDE
  6. NORCO [Concomitant]
     Active Substance: ACETAMINOPHEN\HYDROCODONE BITARTRATE
  7. PEPCID [Concomitant]
     Active Substance: FAMOTIDINE
  8. ALBUTEROL. [Concomitant]
     Active Substance: ALBUTEROL
  9. BENZONATATE 100 MG [Suspect]
     Active Substance: BENZONATATE
     Indication: COUGH
     Dosage: ?          QUANTITY:15 CAPSULE(S);?
     Route: 048
     Dates: start: 20161222, end: 20161223
  10. ATENOLOL. [Concomitant]
     Active Substance: ATENOLOL
  11. NEUROTIN [Concomitant]
     Active Substance: GABAPENTIN

REACTIONS (3)
  - Somnolence [None]
  - Respiratory arrest [None]
  - Cough [None]

NARRATIVE: CASE EVENT DATE: 20161223
